FAERS Safety Report 18553976 (Version 2)
Quarter: 2021Q1

REPORT INFORMATION
  Report Type: Spontaneous
  Country: HR (occurrence: HR)
  Receive Date: 20201127
  Receipt Date: 20210106
  Transmission Date: 20210419
  Serious: Yes (Hospitalization, Other)
  Sender: FDA-Public Use
  Company Number: HR-PFIZER INC-2020461102

PATIENT
  Age: 49 Year
  Sex: Female

DRUGS (8)
  1. GEMTUZUMAB OZOGAMICIN [Suspect]
     Active Substance: GEMTUZUMAB OZOGAMICIN
     Dosage: 4.5 MG/2H D11
     Route: 041
  2. VENETOCLAX. [Suspect]
     Active Substance: VENETOCLAX
     Dosage: UNK, 1 CYCLE
     Dates: start: 202003
  3. THIOTEPA. [Suspect]
     Active Substance: THIOTEPA
     Dosage: UNK
  4. CYCLOPHOSPHAMIDE. [Suspect]
     Active Substance: CYCLOPHOSPHAMIDE
     Dosage: UNK
  5. AZACITIDINE. [Suspect]
     Active Substance: AZACITIDINE
     Dosage: 1 CYCLE
     Dates: start: 202003
  6. ETOPOSIDE. [Suspect]
     Active Substance: ETOPOSIDE
     Dosage: UNK
  7. VENETOCLAX. [Suspect]
     Active Substance: VENETOCLAX
     Dosage: 400 MG
  8. DECITABINE. [Suspect]
     Active Substance: DECITABINE
     Dosage: 20 MG/M2 10D

REACTIONS (9)
  - Febrile neutropenia [Unknown]
  - Epstein-Barr virus infection [Unknown]
  - Febrile neutropenia [Unknown]
  - Nausea [Unknown]
  - Encephalitis viral [Unknown]
  - Diarrhoea [Unknown]
  - Calculus urinary [Unknown]
  - Graft versus host disease in skin [Unknown]
  - Pyrexia [Unknown]

NARRATIVE: CASE EVENT DATE: 2020
